FAERS Safety Report 17841230 (Version 2)
Quarter: 2020Q2

REPORT INFORMATION
  Report Type: Spontaneous
  Country: US (occurrence: US)
  Receive Date: 20200529
  Receipt Date: 20200610
  Transmission Date: 20200714
  Serious: Yes (Death, Life-Threatening, Hospitalization, Other)
  Sender: FDA-Public Use
  Company Number: US-BAYER-2020-093787

PATIENT
  Age: 41 Year
  Sex: Female

DRUGS (1)
  1. ALKA-SELTZER PLUS SORE THROAT RELIEF HONEY LEMON FLAVOR [Suspect]
     Active Substance: ACETAMINOPHEN
     Indication: SUICIDE ATTEMPT
     Dosage: INGESTED APPROXIMATELY 500 TABLETS OF ACETAMINOPHEN
     Route: 048

REACTIONS (6)
  - Intestinal ischaemia [Not Recovered/Not Resolved]
  - Multiple organ dysfunction syndrome [Fatal]
  - Metabolic acidosis [Not Recovered/Not Resolved]
  - Analgesic drug level increased [Fatal]
  - Toxicity to various agents [Fatal]
  - Intentional overdose [Fatal]
